FAERS Safety Report 7643212-6 (Version None)
Quarter: 2011Q3

REPORT INFORMATION
  Report Type: 
  Country: None (occurrence: None)
  Receive Date: 20110729
  Receipt Date: 20110720
  Transmission Date: 20111222
  Serious: Yes (Hospitalization)
  Sender: FDA-Public Use
  Company Number: US-BIOGENIDEC-2011BI012830

PATIENT
  Age: 57 Year
  Sex: Female

DRUGS (2)
  1. TYSABRI [Suspect]
     Indication: MULTIPLE SCLEROSIS
     Route: 042
     Dates: start: 20080208, end: 20080307
  2. TYSABRI [Suspect]
     Route: 042
     Dates: start: 20091111

REACTIONS (8)
  - ASTHENIA [None]
  - POOR VENOUS ACCESS [None]
  - NAUSEA [None]
  - FATIGUE [None]
  - PNEUMONIA [None]
  - COUGH [None]
  - BRONCHIAL DISORDER [None]
  - HEADACHE [None]
